FAERS Safety Report 24013473 (Version 3)
Quarter: 2025Q2

REPORT INFORMATION
  Report Type: Report from Study
  Country: LU (occurrence: LU)
  Receive Date: 20240626
  Receipt Date: 20250516
  Transmission Date: 20250717
  Serious: Yes (Death, Hospitalization, Other)
  Sender: AUROBINDO
  Company Number: LU-APOTEX-2017AP017423

PATIENT
  Age: 63 Year
  Sex: Female

DRUGS (30)
  1. VANCOMYCIN [Suspect]
     Active Substance: VANCOMYCIN
     Indication: Antibiotic prophylaxis
     Route: 065
  2. VANCOMYCIN [Suspect]
     Active Substance: VANCOMYCIN
     Indication: Infection
  3. LEVOFLOXACIN [Suspect]
     Active Substance: LEVOFLOXACIN
     Indication: Infection in an immunocompromised host
     Route: 065
  4. MYCOPHENOLIC ACID [Suspect]
     Active Substance: MYCOPHENOLIC ACID
     Indication: Acute myeloid leukaemia
     Route: 065
  5. MYCOPHENOLIC ACID [Suspect]
     Active Substance: MYCOPHENOLIC ACID
     Indication: Immunosuppressant drug therapy
  6. CYTARABINE [Suspect]
     Active Substance: CYTARABINE
     Indication: Chemotherapy
     Route: 065
  7. CYTARABINE [Suspect]
     Active Substance: CYTARABINE
     Indication: Prophylaxis against graft versus host disease
  8. CYTARABINE [Suspect]
     Active Substance: CYTARABINE
     Indication: Acute myeloid leukaemia
  9. MITOXANTRONE [Suspect]
     Active Substance: MITOXANTRONE HYDROCHLORIDE
     Indication: Chemotherapy
     Route: 065
  10. MITOXANTRONE [Suspect]
     Active Substance: MITOXANTRONE HYDROCHLORIDE
     Indication: Prophylaxis against graft versus host disease
  11. FLUDARABINE [Suspect]
     Active Substance: FLUDARABINE PHOSPHATE
     Indication: Prophylaxis against graft versus host disease
     Route: 065
  12. FLUDARABINE [Suspect]
     Active Substance: FLUDARABINE PHOSPHATE
     Indication: Acute myeloid leukaemia
  13. AMSACRINE [Suspect]
     Active Substance: AMSACRINE
     Indication: Prophylaxis against transplant rejection
     Route: 065
  14. AMSACRINE [Suspect]
     Active Substance: AMSACRINE
     Indication: Acute myeloid leukaemia
  15. BUSULFAN [Suspect]
     Active Substance: BUSULFAN
     Indication: Prophylaxis against transplant rejection
     Route: 065
  16. BUSULFAN [Suspect]
     Active Substance: BUSULFAN
     Indication: Acute myeloid leukaemia
  17. CYCLOSPORINE [Suspect]
     Active Substance: CYCLOSPORINE
     Indication: Immunosuppressant drug therapy
     Route: 065
  18. CYCLOSPORINE [Suspect]
     Active Substance: CYCLOSPORINE
     Indication: Acute myeloid leukaemia
  19. PIPERACILLIN AND TAZOBACTAM [Suspect]
     Active Substance: PIPERACILLIN SODIUM\TAZOBACTAM SODIUM
     Indication: Antibiotic prophylaxis
     Route: 065
  20. PIPERACILLIN AND TAZOBACTAM [Suspect]
     Active Substance: PIPERACILLIN SODIUM\TAZOBACTAM SODIUM
     Indication: Antibiotic prophylaxis
  21. MEROPENEM [Suspect]
     Active Substance: MEROPENEM
     Indication: Antibiotic prophylaxis
     Route: 065
  22. CEFTAZIDIME [Suspect]
     Active Substance: CEFTAZIDIME
     Indication: Antibiotic prophylaxis
     Route: 065
  23. AMPHOTERICIN B [Suspect]
     Active Substance: AMPHOTERICIN B
     Indication: Antibiotic prophylaxis
     Route: 065
  24. TIGECYCLINE [Suspect]
     Active Substance: TIGECYCLINE
     Indication: Antibiotic prophylaxis
     Route: 065
  25. TIGECYCLINE [Suspect]
     Active Substance: TIGECYCLINE
     Indication: Infection
  26. PREDNISOLONE [Suspect]
     Active Substance: PREDNISOLONE
     Indication: Graft versus host disease
     Route: 065
  27. THYMOGLOBULINE [Suspect]
     Active Substance: LAPINE T-LYMPHOCYTE IMMUNE GLOBULIN
     Indication: Acute myeloid leukaemia
     Route: 065
  28. THYMOGLOBULINE [Suspect]
     Active Substance: LAPINE T-LYMPHOCYTE IMMUNE GLOBULIN
     Indication: Immunosuppression
  29. CASPOFUNGIN [Suspect]
     Active Substance: CASPOFUNGIN
     Indication: Antibiotic prophylaxis
     Route: 065
  30. FLUCONAZOLE [Suspect]
     Active Substance: FLUCONAZOLE
     Indication: Antifungal prophylaxis
     Route: 065

REACTIONS (19)
  - Abscess [Fatal]
  - Bacterial sepsis [Fatal]
  - Fatigue [Fatal]
  - Graft versus host disease in gastrointestinal tract [Fatal]
  - Graft versus host disease [Fatal]
  - Gastrointestinal disorder [Fatal]
  - Graft versus host disease in skin [Fatal]
  - Malaise [Fatal]
  - Systemic inflammatory response syndrome [Fatal]
  - Back pain [Fatal]
  - Inflammation [Fatal]
  - Diarrhoea [Fatal]
  - C-reactive protein increased [Fatal]
  - Escherichia infection [Unknown]
  - Paraspinal abscess [Recovered/Resolved]
  - Dysbiosis [Unknown]
  - Neutropenia [Unknown]
  - Multiple-drug resistance [Unknown]
  - White blood cell count decreased [Unknown]
